FAERS Safety Report 5136688-X (Version None)
Quarter: 2006Q4

REPORT INFORMATION
  Report Type: 
  Country: None (occurrence: None)
  Receive Date: 20061023
  Receipt Date: 20061010
  Transmission Date: 20070319
  Serious: Yes (Other)
  Sender: FDA-Public Use
  Company Number: 2006124402

PATIENT
  Age: 45 Year
  Sex: Male

DRUGS (3)
  1. CADUET [Suspect]
  2. LIPITOR [Suspect]
  3. NORVASC [Suspect]

REACTIONS (1)
  - HEPATIC FAILURE [None]
